FAERS Safety Report 19510904 (Version 2)
Quarter: 2021Q3

REPORT INFORMATION
  Report Type: Other
  Country: CZ (occurrence: CZ)
  Receive Date: 20210709
  Receipt Date: 20210817
  Transmission Date: 20211014
  Serious: Yes (Other)
  Sender: FDA-Public Use
  Company Number: CZ-ROCHE-2754185

PATIENT
  Age: 67 Year
  Sex: Female

DRUGS (11)
  1. 5?FLUOROURACIL [Suspect]
     Active Substance: FLUOROURACIL
     Indication: COLORECTAL CANCER METASTATIC
     Dosage: 5 CYCLE
     Route: 042
     Dates: start: 2011
  2. CALCIUM FOLINATE [Suspect]
     Active Substance: LEUCOVORIN CALCIUM
     Indication: COLORECTAL CANCER METASTATIC
     Route: 042
     Dates: start: 2014, end: 201608
  3. BEVACIZUMAB. [Suspect]
     Active Substance: BEVACIZUMAB
     Indication: COLORECTAL CANCER METASTATIC
     Dosage: 5 CYCLE
     Route: 042
     Dates: start: 2011
  4. IRINOTECAN [Suspect]
     Active Substance: IRINOTECAN
     Indication: COLORECTAL CANCER METASTATIC
     Dosage: UNK
     Route: 042
     Dates: start: 2014, end: 201608
  5. LEUCOVORIN. [Suspect]
     Active Substance: LEUCOVORIN
     Route: 042
     Dates: start: 2014, end: 201608
  6. REGORAFENIB. [Suspect]
     Active Substance: REGORAFENIB
     Indication: COLORECTAL CANCER METASTATIC
     Dosage: UNK
     Route: 065
     Dates: start: 201512, end: 201608
  7. OXALIPLATIN. [Suspect]
     Active Substance: OXALIPLATIN
     Indication: COLORECTAL CANCER METASTATIC
     Dosage: 5 CYCLES
     Route: 042
     Dates: start: 2011
  8. 5?FLUOROURACIL [Suspect]
     Active Substance: FLUOROURACIL
     Dosage: UNK
     Route: 042
     Dates: start: 2014, end: 201608
  9. CALCIUM FOLINATE [Suspect]
     Active Substance: LEUCOVORIN CALCIUM
     Route: 042
     Dates: start: 2011
  10. LEUCOVORIN. [Suspect]
     Active Substance: LEUCOVORIN
     Indication: COLORECTAL CANCER METASTATIC
     Dosage: 5 CYCLE
     Route: 042
     Dates: start: 2011
  11. CETUXIMAB. [Suspect]
     Active Substance: CETUXIMAB
     Indication: COLORECTAL CANCER METASTATIC
     Route: 042
     Dates: start: 2014, end: 201608

REACTIONS (8)
  - Haematotoxicity [Recovered/Resolved]
  - Anaemia [Recovered/Resolved]
  - Disease recurrence [Unknown]
  - Neuropathy peripheral [Recovered/Resolved]
  - Disease progression [Unknown]
  - Neutropenia [Recovered/Resolved]
  - Cutaneous symptom [Recovered/Resolved]
  - Colorectal cancer metastatic [Unknown]

NARRATIVE: CASE EVENT DATE: 2011
